FAERS Safety Report 6528350-3 (Version None)
Quarter: 2010Q1

REPORT INFORMATION
  Report Type: 
  Country: None (occurrence: None)
  Receive Date: 20100106
  Receipt Date: 20100104
  Transmission Date: 20100710
  Serious: Yes (Death, Other)
  Sender: FDA-Public Use
  Company Number: PHEH2008US11651

PATIENT
  Sex: Male

DRUGS (1)
  1. LAMISIL [Suspect]
     Indication: ONYCHOMYCOSIS
     Dosage: UNK

REACTIONS (6)
  - ACUTE MYELOID LEUKAEMIA [None]
  - BLOOD COUNT ABNORMAL [None]
  - DEATH [None]
  - MYELODYSPLASTIC SYNDROME [None]
  - PNEUMONIA [None]
  - THROMBOCYTOPENIA [None]
